FAERS Safety Report 4924006-9 (Version None)
Quarter: 2006Q1

REPORT INFORMATION
  Report Type: 
  Country: None (occurrence: None)
  Receive Date: 20060221
  Receipt Date: 20060207
  Transmission Date: 20060701
  Serious: Yes (Other)
  Sender: FDA-Public Use
  Company Number: HQWYE739109FEB06

PATIENT
  Sex: 0

DRUGS (1)
  1. ADVIL COLD AND SINUS [Suspect]
     Dosage: TAKING ONE EVERY MORNING

REACTIONS (1)
  - DRUG DEPENDENCE [None]
